FAERS Safety Report 21565208 (Version 1)
Quarter: 2022Q4

REPORT INFORMATION
  Report Type: Spontaneous
  Country: US (occurrence: None)
  Receive Date: 20221107
  Receipt Date: 20221107
  Transmission Date: 20230113
  Serious: No
  Sender: FDA-Public Use
  Company Number: None

PATIENT
  Age: 78 Year
  Sex: Female

DRUGS (2)
  1. OPZELURA [Suspect]
     Active Substance: RUXOLITINIB PHOSPHATE
     Indication: Dry skin
     Dosage: FREQUENCY : AS DIRECTED;?APPLY TO AFFECTED AREA(S) ON BODY TWICE DAILY FOR 8?WEEKS AS DIRECTED.?
     Dates: start: 202207
  2. OPZELURA [Suspect]
     Active Substance: RUXOLITINIB PHOSPHATE
     Indication: Dermatitis atopic

REACTIONS (1)
  - Pruritus [None]
